FAERS Safety Report 19205207 (Version 1)
Quarter: 2021Q2

REPORT INFORMATION
  Report Type: Spontaneous
  Country: US (occurrence: US)
  Receive Date: 20210503
  Receipt Date: 20210503
  Transmission Date: 20210717
  Serious: No
  Sender: FDA-Public Use
  Company Number: US-FARMAPROD-202008-1134

PATIENT
  Age: 40 Year
  Sex: Female
  Weight: 70.37 kg

DRUGS (3)
  1. OXERVATE [Suspect]
     Active Substance: CENEGERMIN-BKBJ
     Indication: KERATITIS
     Route: 047
     Dates: start: 20200820, end: 20201028
  2. OXERVATE [Suspect]
     Active Substance: CENEGERMIN-BKBJ
     Route: 047
     Dates: start: 20210115
  3. DUREZOL [Concomitant]
     Active Substance: DIFLUPREDNATE

REACTIONS (9)
  - Product use issue [Unknown]
  - Therapy interrupted [Unknown]
  - Accidental overdose [Unknown]
  - Eye pain [Unknown]
  - Migraine [Unknown]
  - Lacrimation increased [Unknown]
  - Asthenopia [Unknown]
  - Eye irritation [Unknown]
  - Photophobia [Unknown]

NARRATIVE: CASE EVENT DATE: 20200822
